FAERS Safety Report 8855987 (Version 1)
Quarter: 2012Q4

REPORT INFORMATION
  Report Type: 
  Country: US (occurrence: US)
  Receive Date: 20121023
  Receipt Date: 20121023
  Transmission Date: 20130627
  Serious: No
  Sender: FDA-Public Use
  Company Number: US-AMGEN-USASP2012058419

PATIENT
  Sex: Male
  Weight: 65 kg

DRUGS (4)
  1. ENBREL [Suspect]
     Indication: PRODUCT USED FOR UNKNOWN INDICATION
     Dosage: 50 mg, 2 times/wk
     Route: 058
  2. ECOTRIN 650 [Concomitant]
     Dosage: 325 mg, UNK
  3. VITAMIN E                          /00110501/ [Concomitant]
     Dosage: 400 unit, UNK
  4. AMLONG [Concomitant]
     Indication: HYPERTENSION
     Dosage: UNK

REACTIONS (1)
  - Abnormal sensation in eye [Unknown]
